FAERS Safety Report 4693298-6 (Version None)
Quarter: 2005Q2

REPORT INFORMATION
  Report Type: 
  Country: None (occurrence: None)
  Receive Date: 20050617
  Receipt Date: 20050609
  Transmission Date: 20051028
  Serious: Yes (Other)
  Sender: FDA-Public Use
  Company Number: GB-GLAXOSMITHKLINE-B0384092A

PATIENT
  Age: 47 Year
  Sex: Female
  Weight: 72.6 kg

DRUGS (5)
  1. AVANDIA [Suspect]
     Dosage: 4MG PER DAY
     Route: 048
     Dates: start: 20050101, end: 20050526
  2. METFORMIN HCL [Concomitant]
     Indication: DIABETES MELLITUS
     Dosage: 850MG PER DAY
     Route: 065
  3. AMARYL [Concomitant]
     Dosage: 4MG PER DAY
     Route: 065
  4. LIPITOR [Concomitant]
     Dosage: 10MG PER DAY
     Route: 065
     Dates: start: 20031201
  5. MIRENA [Concomitant]
     Indication: CONTRACEPTION
     Route: 065

REACTIONS (3)
  - DERMOGRAPHISM [None]
  - DRUG HYPERSENSITIVITY [None]
  - URTICARIA CONTACT [None]
